FAERS Safety Report 11138653 (Version 2)
Quarter: 2015Q3

REPORT INFORMATION
  Report Type: Report from Study
  Country: US (occurrence: US)
  Receive Date: 20150527
  Receipt Date: 20150819
  Transmission Date: 20151125
  Serious: Yes (Hospitalization, Other)
  Sender: FDA-Public Use
  Company Number: PHHO2013US010218

PATIENT
  Age: 55 Year
  Sex: Male
  Weight: 88 kg

DRUGS (4)
  1. AFINITOR [Suspect]
     Active Substance: EVEROLIMUS
     Indication: METASTATIC MALIGNANT MELANOMA
     Dosage: 5 MG, QD [2XWEEKLY MONDAY AND FRIDAY]
     Route: 048
     Dates: start: 20130301
  2. BEVACIZUMAB [Suspect]
     Active Substance: BEVACIZUMAB
     Indication: METASTATIC MALIGNANT MELANOMA
     Dosage: 10 MG/KG, UNK [DAY 1 + 15]
     Route: 042
     Dates: start: 20130301
  3. TAXOL [Concomitant]
     Active Substance: PACLITAXEL
     Indication: METASTATIC MALIGNANT MELANOMA
     Dosage: 60 MG/M2, QD [DAYS 1,8 +15]
     Route: 042
     Dates: start: 20130301
  4. CARBOPLATIN. [Concomitant]
     Active Substance: CARBOPLATIN
     Indication: METASTATIC MALIGNANT MELANOMA
     Dosage: UNK
     Route: 042
     Dates: start: 20130301

REACTIONS (3)
  - Hepatic vein occlusion [Not Recovered/Not Resolved]
  - Portal vein thrombosis [Not Recovered/Not Resolved]
  - Embolism [Unknown]

NARRATIVE: CASE EVENT DATE: 20130730
